FAERS Safety Report 8690814 (Version 3)
Quarter: 2014Q3

REPORT INFORMATION
  Report Type: Spontaneous
  Country: US (occurrence: US)
  Receive Date: 20120729
  Receipt Date: 20140904
  Transmission Date: 20150326
  Serious: Yes (Hospitalization, Other)
  Sender: FDA-Public Use
  Company Number: US-009507513-1207USA005906

PATIENT
  Sex: Female
  Weight: 73.92 kg

DRUGS (7)
  1. FOSAMAX [Suspect]
     Active Substance: ALENDRONATE SODIUM
     Route: 048
  2. ALENDRONATE SODIUM. [Suspect]
     Active Substance: ALENDRONATE SODIUM
     Indication: OSTEOPENIA
     Dosage: 70 MG, UNK
     Route: 048
     Dates: start: 200803, end: 201008
  3. METHIMAZOLE. [Concomitant]
     Active Substance: METHIMAZOLE
     Indication: HYPERTHYROIDISM
     Dosage: UNK
     Dates: start: 2002
  4. HYDROCHLOROTHIAZIDE. [Concomitant]
     Active Substance: HYDROCHLOROTHIAZIDE
     Indication: RENAL DISORDER
     Dosage: UNK
     Dates: start: 1999, end: 2007
  5. FOSAMAX [Suspect]
     Active Substance: ALENDRONATE SODIUM
     Indication: OSTEOPOROSIS
     Dosage: 70 MG, UNK
     Route: 048
     Dates: start: 201009, end: 201012
  6. FOSAMAX [Suspect]
     Active Substance: ALENDRONATE SODIUM
     Indication: BONE LOSS
  7. FOSAMAX [Suspect]
     Active Substance: ALENDRONATE SODIUM
     Indication: OSTEOPENIA
     Dosage: 70 MG, QW
     Route: 048
     Dates: start: 200506, end: 20100721

REACTIONS (15)
  - Herpes simplex [Unknown]
  - Hysterectomy [Unknown]
  - Fall [Unknown]
  - Arthritis [Unknown]
  - Femur fracture [Recovering/Resolving]
  - Intramedullary rod insertion [Unknown]
  - Low turnover osteopathy [Unknown]
  - Transfusion [Unknown]
  - Cholecystectomy [Unknown]
  - Vitamin D deficiency [Unknown]
  - Pyrexia [Recovered/Resolved]
  - Anaemia [Recovered/Resolved]
  - Diverticulum [Unknown]
  - Appendicectomy [Unknown]
  - Gallbladder disorder [Unknown]

NARRATIVE: CASE EVENT DATE: 2005
